FAERS Safety Report 6804487-6 (Version None)
Quarter: 2010Q2

REPORT INFORMATION
  Report Type: 
  Country: None (occurrence: None)
  Receive Date: 20100628
  Receipt Date: 20070405
  Transmission Date: 20101027
  Serious: Yes (Other)
  Sender: FDA-Public Use
  Company Number: US-PFIZER INC-2007028581

PATIENT
  Sex: Female
  Weight: 68 kg

DRUGS (4)
  1. SUTENT [Suspect]
     Indication: RENAL CELL CARCINOMA
     Dosage: DAILY
     Dates: start: 20061201, end: 20070405
  2. XANAX [Concomitant]
  3. CLARITIN-D [Concomitant]
  4. BENADRYL [Concomitant]

REACTIONS (5)
  - ANAEMIA [None]
  - DECREASED APPETITE [None]
  - DRY MOUTH [None]
  - TONGUE DISORDER [None]
  - WHITE BLOOD CELL COUNT DECREASED [None]
